FAERS Safety Report 10750669 (Version 1)
Quarter: 2015Q1

REPORT INFORMATION
  Report Type: Spontaneous
  Country: IR (occurrence: IR)
  Receive Date: 20150130
  Receipt Date: 20150130
  Transmission Date: 20150721
  Serious: Yes (Other)
  Sender: FDA-Public Use
  Company Number: IR-RANBAXY-2015RR-92071

PATIENT
  Age: 28 Year
  Sex: Female

DRUGS (1)
  1. METFORMIN [Suspect]
     Active Substance: METFORMIN HYDROCHLORIDE
     Indication: OVULATION INDUCTION
     Dosage: 1500 MG, DAILY
     Route: 065

REACTIONS (3)
  - Ovarian adenoma [Recovered/Resolved with Sequelae]
  - Ectopic pregnancy [Recovered/Resolved with Sequelae]
  - Off label use [Recovered/Resolved with Sequelae]
